FAERS Safety Report 12546629 (Version 3)
Quarter: 2019Q3

REPORT INFORMATION
  Report Type: Report from Study
  Country: CA (occurrence: CA)
  Receive Date: 20160711
  Receipt Date: 20190916
  Transmission Date: 20191004
  Serious: Yes (Death, Life-Threatening, Hospitalization, Other)
  Sender: FDA-Public Use
  Company Number: CA-PFIZER INC-2013220952

PATIENT
  Age: 73 Year
  Sex: Male

DRUGS (26)
  1. AZATHIOPRINE. [Concomitant]
     Active Substance: AZATHIOPRINE
     Dosage: 50 MG, QD
     Route: 048
     Dates: start: 20130826
  2. METHOTRIMEPRAZINE [Concomitant]
     Active Substance: LEVOMEPROMAZINE
     Dosage: 12.5 MG, PRN
     Route: 042
     Dates: start: 20130830
  3. NIZORAL [Concomitant]
     Active Substance: KETOCONAZOLE
     Indication: FUNGAL INFECTION
     Dosage: UNK, 2X/DAY
     Route: 061
     Dates: start: 20111215, end: 20120202
  4. RAMIPRIL. [Concomitant]
     Active Substance: RAMIPRIL
     Indication: HYPERTENSION
     Dosage: 15 MG, DAILY
     Route: 048
     Dates: start: 2005, end: 20130703
  5. TYLENOL ARTHRITIS PAIN [Concomitant]
     Active Substance: ACETAMINOPHEN
     Indication: RHEUMATOID ARTHRITIS
     Dosage: 650 MG, AS NEEDED
     Route: 048
     Dates: start: 20111218, end: 20120630
  6. KENALOG [Concomitant]
     Active Substance: TRIAMCINOLONE ACETONIDE
     Indication: RHEUMATOID ARTHRITIS
     Dosage: 0.25 MG, SINGLE
     Route: 014
     Dates: start: 20120203, end: 20120203
  7. ETANERCEPT [Suspect]
     Active Substance: ETANERCEPT
     Indication: RHEUMATOID ARTHRITIS
     Dosage: 50 MG, WEEKLY, ON 26/JUN/2013, HE RECEIVED THE MOST RECENT DOSE OF ETANERCEPT
     Route: 058
     Dates: start: 20130606
  8. METHOTREXATE SODIUM. [Suspect]
     Active Substance: METHOTREXATE SODIUM
     Dosage: QS (15 MG), UNK
     Route: 048
     Dates: start: 20130224, end: 20130703
  9. METHOTREXATE SODIUM. [Suspect]
     Active Substance: METHOTREXATE SODIUM
     Dosage: QS (20 MG), UNK
     Route: 048
     Dates: start: 20130822, end: 20130826
  10. LIPITOR [Concomitant]
     Active Substance: ATORVASTATIN CALCIUM
     Indication: HYPERLIPIDAEMIA
     Dosage: UNK UNK, QD
     Route: 048
     Dates: start: 2005, end: 20130715
  11. FOLIC ACID. [Concomitant]
     Active Substance: FOLIC ACID
     Dosage: QS (5 MG), UNK
     Route: 048
     Dates: start: 2009, end: 20130715
  12. MIDAZOLAM HYDROCHLORIDE. [Concomitant]
     Active Substance: MIDAZOLAM HYDROCHLORIDE
     Dosage: 6 MG, UNK
     Route: 065
     Dates: start: 20130905, end: 20130905
  13. AMIODARONE [Concomitant]
     Active Substance: AMIODARONE
     Dosage: 300 MG, SINGLE
     Route: 042
     Dates: start: 20130905, end: 20130905
  14. HEPARIN SODIUM. [Concomitant]
     Active Substance: HEPARIN SODIUM
     Dosage: 5000 UNIT, 2X/DAY
     Route: 058
     Dates: start: 20130830, end: 20130914
  15. FLUMAZENIL. [Concomitant]
     Active Substance: FLUMAZENIL
     Dosage: 0.3 MG, SINGLE
     Route: 042
     Dates: start: 20130905, end: 20130905
  16. METHOTREXATE SODIUM. [Suspect]
     Active Substance: METHOTREXATE SODIUM
     Dosage: QS (12.5 MG), UNK
     Route: 048
     Dates: start: 20130815, end: 20130821
  17. NORVASC [Concomitant]
     Active Substance: AMLODIPINE BESYLATE
     Indication: HYPERTENSION
     Dosage: 5 MG, DAILY
     Route: 048
     Dates: start: 2005, end: 20130703
  18. FENTANYL. [Concomitant]
     Active Substance: FENTANYL
     Dosage: 75 MG, UNK
     Route: 065
     Dates: start: 20130905, end: 20130905
  19. TINACTIN [Concomitant]
     Active Substance: TOLNAFTATE
     Indication: FUNGAL INFECTION
     Dosage: UNK
     Route: 061
     Dates: start: 20120203, end: 20120303
  20. KEFLEX [Concomitant]
     Active Substance: CEPHALEXIN
     Dosage: 2000 MG, 4X/DAY
     Route: 048
     Dates: start: 20130529, end: 20130605
  21. VITAMIN D3 [Concomitant]
     Active Substance: CHOLECALCIFEROL
     Dosage: UNK UNK, QD
     Route: 048
     Dates: start: 2009, end: 20130715
  22. METHOTREXATE SODIUM. [Suspect]
     Active Substance: METHOTREXATE SODIUM
     Indication: RHEUMATOID ARTHRITIS
     Dosage: QS (22.5 MG), UNK
     Route: 048
     Dates: start: 2009, end: 20130223
  23. ASPIRIN. [Concomitant]
     Active Substance: ASPIRIN
     Dosage: 81 MG, DAILY
     Route: 048
     Dates: start: 2005
  24. WILD SALMON AND FISH OILS OMEGA 3 COMPLEX [Concomitant]
     Dosage: UNK
  25. MUPIROCIN. [Concomitant]
     Active Substance: MUPIROCIN
     Dosage: 1 UNIT NOT REPORTED, 2 IN 1 D
     Route: 061
     Dates: start: 20130826, end: 20130914
  26. NAPROXEN. [Concomitant]
     Active Substance: NAPROXEN
     Indication: RHEUMATOID ARTHRITIS
     Dosage: 220 MG, UNK
     Route: 048
     Dates: start: 20111224, end: 20120630

REACTIONS (10)
  - Hypersensitivity vasculitis [Fatal]
  - Acute kidney injury [Not Recovered/Not Resolved]
  - Respiratory failure [Not Recovered/Not Resolved]
  - Hypotension [Not Recovered/Not Resolved]
  - Encephalopathy [Not Recovered/Not Resolved]
  - Septic shock [Not Recovered/Not Resolved]
  - Coagulopathy [Not Recovered/Not Resolved]
  - Paraproteinaemia [Not Recovered/Not Resolved]
  - Atrial fibrillation [Not Recovered/Not Resolved]
  - Pneumonia [Not Recovered/Not Resolved]

NARRATIVE: CASE EVENT DATE: 20130706
